FAERS Safety Report 7731812-4 (Version None)
Quarter: 2011Q3

REPORT INFORMATION
  Report Type: 
  Country: None (occurrence: None)
  Receive Date: 20110906
  Receipt Date: 20110831
  Transmission Date: 20111222
  Serious: Yes (Death)
  Sender: FDA-Public Use
  Company Number: PHHO2011NL14811

PATIENT
  Age: 51 Year
  Sex: Male
  Weight: 89.6 kg

DRUGS (3)
  1. ILARIS [Suspect]
     Indication: TYPE 2 DIABETES MELLITUS
  2. SINTROM [Suspect]
     Indication: AORTIC VALVE REPLACEMENT
     Dosage: 3 TO 4 MG, DAILY
     Route: 048
     Dates: start: 20070101
  3. ILARIS [Suspect]
     Indication: ARTERIOSCLEROSIS
     Dosage: DOUBLE BLINDED
     Route: 058
     Dates: start: 20110221, end: 20110708

REACTIONS (4)
  - CARDIAC OUTPUT DECREASED [None]
  - HYPOVOLAEMIA [None]
  - RETROPERITONEAL HAEMORRHAGE [None]
  - ROAD TRAFFIC ACCIDENT [None]
